FAERS Safety Report 6734125 (Version 17)
Quarter: 2014Q1

REPORT INFORMATION
  Report Type: Spontaneous
  Country: US (occurrence: US)
  Receive Date: 20080822
  Receipt Date: 20140322
  Transmission Date: 20141002
  Serious: Yes (Hospitalization, Other)
  Sender: FDA-Public Use
  Company Number: US-ROCHE-552223

PATIENT
  Age: 23 Year
  Sex: Female
  Weight: 68 kg

DRUGS (4)
  1. ACCUTANE [Suspect]
     Indication: ACNE
     Route: 065
  2. ACCUTANE [Suspect]
     Route: 065
  3. ACCUTANE [Suspect]
     Route: 065
     Dates: start: 20011009, end: 20020102
  4. CLEOCIN T [Concomitant]
     Indication: ACNE
     Route: 065

REACTIONS (14)
  - Appendicitis [Unknown]
  - Crohn^s disease [Recovering/Resolving]
  - Colitis ulcerative [Unknown]
  - Inflammatory bowel disease [Unknown]
  - Irritable bowel syndrome [Unknown]
  - Depression [Unknown]
  - Suicidal ideation [Unknown]
  - Bipolar disorder [Unknown]
  - Anaemia [Unknown]
  - Cheilitis [Unknown]
  - Rhinorrhoea [Unknown]
  - Blood triglycerides increased [Unknown]
  - Epistaxis [Unknown]
  - White blood cell count increased [Unknown]
